FAERS Safety Report 20381913 (Version 2)
Quarter: 2022Q1

REPORT INFORMATION
  Report Type: Spontaneous
  Country: AU (occurrence: AU)
  Receive Date: 20220127
  Receipt Date: 20220302
  Transmission Date: 20220423
  Serious: Yes (Hospitalization)
  Sender: FDA-Public Use
  Company Number: AU-VALIDUS PHARMACEUTICALS LLC-AU-VDP-2022-014988

PATIENT

DRUGS (5)
  1. CEFOTAXIME SODIUM [Suspect]
     Active Substance: CEFOTAXIME SODIUM
     Indication: Sinusitis bacterial
     Dosage: UNK
     Route: 042
  2. CEFOTAXIME SODIUM [Suspect]
     Active Substance: CEFOTAXIME SODIUM
     Indication: Osteomyelitis bacterial
  3. PHENYTOIN [Suspect]
     Active Substance: PHENYTOIN
     Indication: Seizure
     Dosage: UNK
     Route: 065
  4. FLUCLOXACILLIN [Suspect]
     Active Substance: FLUCLOXACILLIN
     Indication: Sinusitis bacterial
     Dosage: UNK
     Route: 042
  5. LINCOMYCIN [Concomitant]
     Active Substance: LINCOMYCIN
     Indication: Product used for unknown indication
     Route: 065

REACTIONS (5)
  - Rash erythematous [Recovered/Resolved]
  - Inflammatory marker increased [Recovered/Resolved]
  - Drug hypersensitivity [Recovered/Resolved]
  - Pyrexia [Recovered/Resolved]
  - Eosinophilia [Recovered/Resolved]
